FAERS Safety Report 25005647 (Version 2)
Quarter: 2025Q3

REPORT INFORMATION
  Report Type: Spontaneous
  Country: US (occurrence: US)
  Receive Date: 20250224
  Receipt Date: 20250829
  Transmission Date: 20251021
  Serious: Yes (Death, Other)
  Sender: INCYTE
  Company Number: US-EVENT-001792

PATIENT

DRUGS (2)
  1. NIKTIMVO [Suspect]
     Active Substance: AXATILIMAB-CSFR
     Indication: Chronic graft versus host disease
     Route: 065
  2. NIKTIMVO [Suspect]
     Active Substance: AXATILIMAB-CSFR
     Route: 065

REACTIONS (2)
  - Pancreatitis [Fatal]
  - Candida infection [Fatal]
